FAERS Safety Report 18618679 (Version 1)
Quarter: 2020Q4

REPORT INFORMATION
  Report Type: Spontaneous
  Country: US (occurrence: US)
  Receive Date: 20201215
  Receipt Date: 20201215
  Transmission Date: 20210114
  Serious: No
  Sender: FDA-Public Use
  Company Number: US-LUPIN PHARMACEUTICALS INC.-2020-10162

PATIENT
  Age: 55 Year

DRUGS (10)
  1. OXYCODONE [Suspect]
     Active Substance: OXYCODONE
     Indication: SKIN DISORDER
     Dosage: 30 MILLIGRAM, QD
     Route: 065
  2. GABAPENTIN. [Suspect]
     Active Substance: GABAPENTIN
     Indication: SKIN DISORDER
     Dosage: 900 MILLIGRAM, QD
     Route: 065
  3. BUTORPHANOL [Concomitant]
     Active Substance: BUTORPHANOL
     Indication: SKIN DISORDER
     Dosage: 10 MILLIGRAM PER MILLILITRE, PRN-UPTO 4 HRS
     Route: 045
  4. AMITRIPTYLINE [Suspect]
     Active Substance: AMITRIPTYLINE
     Indication: SKIN DISORDER
     Dosage: 100 MILLIGRAM, QD
     Route: 065
  5. CLONAZEPAM. [Suspect]
     Active Substance: CLONAZEPAM
     Indication: SKIN DISORDER
     Dosage: 4 MILLIGRAM, QD
     Route: 065
  6. CELECOXIB. [Suspect]
     Active Substance: CELECOXIB
     Indication: SKIN DISORDER
     Dosage: 200 MILLIGRAM, UNK
     Route: 065
  7. CYCLOBENZAPRINE. [Suspect]
     Active Substance: CYCLOBENZAPRINE
     Indication: SKIN DISORDER
     Dosage: 20 MILLIGRAM, QD
     Route: 065
  8. PIMECROLIMUS. [Suspect]
     Active Substance: PIMECROLIMUS
     Indication: SKIN DISORDER
     Dosage: UNK
     Route: 065
  9. LAMOTRIGINE. [Suspect]
     Active Substance: LAMOTRIGINE
     Indication: SKIN DISORDER
     Dosage: 150 MILLIGRAM, QD
     Route: 065
  10. PRAMOXINE [Suspect]
     Active Substance: PRAMOXINE
     Indication: SKIN DISORDER
     Dosage: UNK
     Route: 065

REACTIONS (1)
  - Treatment failure [Unknown]
